FAERS Safety Report 9298916 (Version 1)
Quarter: 2013Q2

REPORT INFORMATION
  Report Type: Spontaneous
  Country: US (occurrence: US)
  Receive Date: 20130520
  Receipt Date: 20130520
  Transmission Date: 20140414
  Serious: No
  Sender: FDA-Public Use
  Company Number: US-SANOFI-AVENTIS-2012SA067970

PATIENT
  Sex: Male

DRUGS (2)
  1. APIDRA [Suspect]
     Indication: DIABETES MELLITUS
     Dosage: DOSE:2 TO 10 UNITS (SLIDING SCALE)
     Route: 058
     Dates: start: 2008
  2. CORTICOSTEROIDS [Suspect]
     Indication: NEUROPATHY PERIPHERAL
     Route: 065

REACTIONS (2)
  - Blood glucose increased [Unknown]
  - Prostate infection [Unknown]
